FAERS Safety Report 7215842-7 (Version None)
Quarter: 2011Q1

REPORT INFORMATION
  Report Type: 
  Country: None (occurrence: None)
  Receive Date: 20110107
  Receipt Date: 20101223
  Transmission Date: 20110831
  Serious: Yes (Death, Hospitalization, Other)
  Sender: FDA-Public Use
  Company Number: FI-GENENTECH-309405

PATIENT
  Age: 55 Year
  Sex: Female

DRUGS (1)
  1. MABTHERA [Suspect]
     Indication: VASCULITIS
     Dosage: 1000 MG, UNK
     Route: 042
     Dates: start: 20080405, end: 20080101

REACTIONS (9)
  - DEPRESSED LEVEL OF CONSCIOUSNESS [None]
  - MULTI-ORGAN FAILURE [None]
  - LOSS OF CONSCIOUSNESS [None]
  - ILL-DEFINED DISORDER [None]
  - FEBRILE INFECTION [None]
  - TUBERCULOSIS [None]
  - PROGRESSIVE MULTIFOCAL LEUKOENCEPHALOPATHY [None]
  - PYREXIA [None]
  - MYCOBACTERIAL INFECTION [None]
